FAERS Safety Report 4764521-4 (Version None)
Quarter: 2005Q3

REPORT INFORMATION
  Report Type: 
  Country: None (occurrence: None)
  Receive Date: 20050907
  Receipt Date: 20050826
  Transmission Date: 20060218
  Serious: Yes (Death, Other)
  Sender: FDA-Public Use
  Company Number: 2005019251

PATIENT
  Sex: Male

DRUGS (1)
  1. SULPERAZON (SULBACTAM, CEFOPERAZONE) [Suspect]
     Indication: PROSTATIC OPERATION
     Dosage: 2 GRAM  (1 GRAM, BID), INTRAVENOUS
     Route: 042

REACTIONS (3)
  - CHOLESTASIS [None]
  - HEPATIC NECROSIS [None]
  - PROTHROMBIN TIME PROLONGED [None]
